FAERS Safety Report 7375533-9 (Version None)
Quarter: 2011Q1

REPORT INFORMATION
  Report Type: 
  Country: None (occurrence: None)
  Receive Date: 20110325
  Receipt Date: 20101001
  Transmission Date: 20110831
  Serious: Yes (Other)
  Sender: FDA-Public Use
  Company Number: US-BAYER-201034829NA

PATIENT
  Sex: Female
  Weight: 52.154 kg

DRUGS (10)
  1. MELOXICAM [Concomitant]
     Dosage: 15 MG /DAY
     Route: 048
  2. SULFAMETHOXAZOLE AND TRIMETHOPRIM [Concomitant]
     Dosage: (800/160) 1 TAB
     Route: 048
  3. YASMIN [Suspect]
     Indication: CONTRACEPTION
  4. METHOCARBAMOL [Concomitant]
     Dosage: 750 MG, BID AS NEEDED
     Route: 048
  5. YASMIN [Suspect]
     Indication: ACNE
  6. ACETAMINOPHEN [Concomitant]
     Indication: HEADACHE
     Dosage: 2 PILS
  7. OCELLA [Suspect]
     Indication: ACNE
  8. OCELLA [Suspect]
     Indication: CONTRACEPTION
  9. VITAMINS NOS [Concomitant]
  10. CEFDINIR [Concomitant]
     Dosage: 300 MG, BID /DAY
     Route: 048

REACTIONS (3)
  - GALLBLADDER CHOLESTEROLOSIS [None]
  - GALLBLADDER DISORDER [None]
  - CHOLECYSTITIS CHRONIC [None]
